FAERS Safety Report 7738143-7 (Version None)
Quarter: 2011Q3

REPORT INFORMATION
  Report Type: 
  Country: None (occurrence: None)
  Receive Date: 20110906
  Receipt Date: 20110906
  Transmission Date: 20111222
  Serious: Yes (Hospitalization)
  Sender: FDA-Public Use
  Company Number: 2009JP001782

PATIENT
  Age: 20 Year
  Sex: Female
  Weight: 60.3 kg

DRUGS (30)
  1. TACROLIMUS [Suspect]
     Indication: LUPUS NEPHRITIS
     Dosage: 3 MG, UNKNOWN/ D, ORAL
     Route: 048
     Dates: start: 20080716
  2. MEDROL [Suspect]
     Indication: LUPUS NEPHRITIS
     Dosage: 22 MG, UNKNOWN/D, ORAL
     Dates: end: 20080812
  3. PREDNISOLONE [Concomitant]
  4. PLETAL [Suspect]
     Dosage: 200 MG, UNKNOWN/D, ORAL
     Route: 048
     Dates: end: 20081008
  5. ASPIRIN [Concomitant]
  6. COTRIM [Concomitant]
  7. FUNGIZONE [Concomitant]
  8. FERROMIA (FERROUS SODIUM CITRATE) [Concomitant]
  9. SOLITA-T3 (POTASSIUM CHLORIDE, SODIUM CHLORIDE, SODIUM LACTATE) [Concomitant]
  10. ACTONEL [Concomitant]
  11. ONEALFA (ALFACALCIDOL) [Concomitant]
  12. SUMILU (FELBINAC) [Concomitant]
  13. VEEN D (CALCIUM CHLORIDE DIHYDRATE, GLUCOSE, POTASSIUM CHLORIDE, SODIU [Concomitant]
  14. AMIKACIN [Concomitant]
  15. EVAMYL (LORMETAZEPAM) [Concomitant]
  16. PL GRAN. (CAFFEINE, PARACETAMOL, PROMETHAZINE METHYLENE DISALICYLATE, [Concomitant]
  17. LAMISIL [Concomitant]
  18. TRANEXAMIC ACID [Concomitant]
  19. WARFARIN SODIUM [Concomitant]
  20. KAYTWO N (MENATETRENONE) [Concomitant]
  21. PLETAAL (CILOSTAZOL) ORODISPERSIBLE CR TABLET [Concomitant]
  22. SOLETON (ZALTOPROFEN) [Concomitant]
  23. PREDNISOLONE [Concomitant]
  24. MICARDIS [Concomitant]
  25. LASIX [Concomitant]
  26. FLOMOX (CEFCAPINE PIVOXIL HYDROCHLORIDE) [Concomitant]
  27. LEVOFLOXACIN [Concomitant]
  28. RABEPRAZOLE SODIUM [Concomitant]
  29. LAC B (LACTOBACILLUS BIFIDUS, LYOPHILIZED) [Concomitant]
  30. PRIMPERAN (METCLOPRAMIDE HYDROCHLORIDE) [Concomitant]

REACTIONS (17)
  - ENTEROCOLITIS [None]
  - DERMATITIS ALLERGIC [None]
  - PROTHROMBIN TIME PROLONGED [None]
  - URINARY TRACT INFECTION [None]
  - GASTROENTERITIS [None]
  - ECZEMA [None]
  - HAEMOGLOBIN DECREASED [None]
  - UPPER RESPIRATORY TRACT INFLAMMATION [None]
  - DIZZINESS [None]
  - PAIN IN EXTREMITY [None]
  - HAEMORRHAGIC DIATHESIS [None]
  - TONSILLITIS [None]
  - GINGIVAL BLEEDING [None]
  - DENTAL CARIES [None]
  - ACUTE TONSILLITIS [None]
  - INTERNATIONAL NORMALISED RATIO INCREASED [None]
  - MYALGIA [None]
